FAERS Safety Report 14223475 (Version 1)
Quarter: 2017Q4

REPORT INFORMATION
  Report Type: Spontaneous
  Country: US (occurrence: US)
  Receive Date: 20171125
  Receipt Date: 20171125
  Transmission Date: 20180321
  Serious: Yes (Other)
  Sender: FDA-Public Use
  Company Number: PHEH2017US037504

PATIENT
  Sex: Female
  Weight: 61.23 kg

DRUGS (1)
  1. VIVELLE-DOT [Suspect]
     Active Substance: ESTRADIOL
     Indication: HORMONE REPLACEMENT THERAPY
     Dosage: 0.1 MG, UNK (PATCH REPLACED EVERY 3 DAYS)
     Route: 003

REACTIONS (6)
  - Drug ineffective [Unknown]
  - Application site erosion [Not Recovered/Not Resolved]
  - Application site burn [Unknown]
  - Application site swelling [Unknown]
  - Application site pruritus [Unknown]
  - Application site scar [Unknown]
